FAERS Safety Report 10670788 (Version 1)
Quarter: 2014Q4

REPORT INFORMATION
  Report Type: Spontaneous
  Country: US (occurrence: None)
  Receive Date: 20141219
  Receipt Date: 20141219
  Transmission Date: 20150529
  Serious: Yes (Other)
  Sender: FDA-Public Use
  Company Number: 17433-2014-01

PATIENT
  Age: 25 Year
  Sex: Male

DRUGS (2)
  1. ENEMEEZ [Suspect]
     Active Substance: DOCUSATE SODIUM
     Indication: FAECES HARD
     Route: 054
  2. ENEMEEZ [Suspect]
     Active Substance: DOCUSATE SODIUM
     Indication: LAXATIVE SUPPORTIVE CARE
     Route: 054

REACTIONS (3)
  - Rectal injury [None]
  - Embedded device [None]
  - Device physical property issue [None]

NARRATIVE: CASE EVENT DATE: 20141204
